FAERS Safety Report 7041175-8 (Version None)
Quarter: 2010Q4

REPORT INFORMATION
  Report Type: 
  Country: None (occurrence: None)
  Receive Date: 20101013
  Receipt Date: 20101001
  Transmission Date: 20110411
  Serious: Yes (Hospitalization)
  Sender: FDA-Public Use
  Company Number: DK-JNJFOC-20101001017

PATIENT
  Sex: Male

DRUGS (1)
  1. REMICADE [Suspect]
     Indication: ENTERITIS
     Route: 042

REACTIONS (8)
  - DRUG INEFFECTIVE [None]
  - LUNG DISORDER [None]
  - MEMORY IMPAIRMENT [None]
  - ORAL FUNGAL INFECTION [None]
  - PNEUMOCYSTIS JIROVECI PNEUMONIA [None]
  - SEPSIS [None]
  - STREPTOCOCCAL INFECTION [None]
  - TUBERCULOSIS [None]
